FAERS Safety Report 4323870-4 (Version None)
Quarter: 2004Q1

REPORT INFORMATION
  Report Type: 
  Country: None (occurrence: None)
  Receive Date: 20040326
  Receipt Date: 20030623
  Transmission Date: 20041129
  Serious: No
  Sender: FDA-Public Use
  Company Number: US-GLAXOSMITHKLINE-A0414000A

PATIENT
  Age: 85 Year
  Sex: Female

DRUGS (14)
  1. ADVAIR DISKUS 100/50 [Suspect]
     Dosage: 1PUFF TWICE PER DAY
     Route: 055
  2. ALBUTEROL [Concomitant]
     Route: 055
  3. NEXIUM [Concomitant]
     Route: 065
  4. TRAMADOL HCL [Concomitant]
     Route: 065
  5. PREDNISONE [Concomitant]
     Route: 065
  6. CELEBREX [Concomitant]
     Route: 065
  7. DYAZIDE [Concomitant]
     Route: 065
  8. DETROL [Concomitant]
     Route: 065
  9. TYLENOL (CAPLET) [Concomitant]
     Route: 065
  10. MULTI-VITAMIN [Concomitant]
     Route: 065
  11. MULTIVITAMIN [Concomitant]
     Route: 065
  12. CALCIUM + D [Concomitant]
     Route: 065
  13. VITAMIN C [Concomitant]
     Route: 065
  14. PREMARIN [Concomitant]
     Route: 065

REACTIONS (3)
  - BLOOD PRESSURE INCREASED [None]
  - HEADACHE [None]
  - PHARMACEUTICAL PRODUCT COMPLAINT [None]
